FAERS Safety Report 4632144-3 (Version None)
Quarter: 2005Q2

REPORT INFORMATION
  Report Type: 
  Country: None (occurrence: None)
  Receive Date: 20050401
  Receipt Date: 20040405
  Transmission Date: 20051028
  Serious: Yes (Life-Threatening, Hospitalization)
  Sender: FDA-Public Use
  Company Number: 04P-163-0257646-00

PATIENT
  Age: 24 Year
  Sex: Male

DRUGS (1)
  1. DEPAKOTE [Suspect]
     Indication: SCHIZOAFFECTIVE DISORDER
     Dosage: 250 MG, 3 IN 1 D
     Dates: start: 20000721, end: 20040126

REACTIONS (2)
  - DRUG LEVEL DECREASED [None]
  - WHITE BLOOD CELL COUNT DECREASED [None]
